FAERS Safety Report 6285940-3 (Version None)
Quarter: 2009Q3

REPORT INFORMATION
  Report Type: 
  Country: None (occurrence: None)
  Receive Date: 20090728
  Receipt Date: 20090720
  Transmission Date: 20100115
  Serious: Yes (Hospitalization)
  Sender: FDA-Public Use
  Company Number: ES-JNJFOC-20090706117

PATIENT
  Age: 37 Year
  Sex: Female

DRUGS (6)
  1. REMICADE [Suspect]
     Dosage: THERAPY DURATION 4 YEARS, 2 MONTHS
  2. REMICADE [Suspect]
  3. REMICADE [Suspect]
     Indication: RHEUMATOID ARTHRITIS
  4. METHOTREXATE [Concomitant]
  5. URBASON [Concomitant]
  6. ACFOL [Concomitant]

REACTIONS (2)
  - SEPTIC ARTHRITIS STAPHYLOCOCCAL [None]
  - SYNOVITIS [None]
